FAERS Safety Report 9900415 (Version 1)
Quarter: 2014Q1

REPORT INFORMATION
  Report Type: Spontaneous
  Country: US (occurrence: US)
  Receive Date: 20140217
  Receipt Date: 20140217
  Transmission Date: 20141002
  Serious: Yes (Hospitalization)
  Sender: FDA-Public Use
  Company Number: US-ROCHE-1348060

PATIENT
  Sex: Female

DRUGS (2)
  1. CATHFLO ACTIVASE [Suspect]
     Indication: DEVICE OCCLUSION
     Route: 065
     Dates: start: 201310
  2. CATHFLO ACTIVASE [Suspect]
     Route: 065
     Dates: start: 20140206

REACTIONS (2)
  - Infection [Unknown]
  - Reocclusion [Unknown]
